FAERS Safety Report 23561396 (Version 1)
Quarter: 2024Q1

REPORT INFORMATION
  Report Type: Spontaneous
  Country: US (occurrence: US)
  Receive Date: 20240224
  Receipt Date: 20240224
  Transmission Date: 20240410
  Serious: No
  Sender: FDA-Public Use
  Company Number: US-AMGEN-USASP2024037023

PATIENT

DRUGS (1)
  1. OTEZLA [Suspect]
     Active Substance: APREMILAST
     Indication: Product used for unknown indication
     Dosage: ON THE STARTER PACK INCREASING DOSAGE EACH DAY UP TO FULL DOSE NOW
     Route: 065

REACTIONS (3)
  - Abdominal pain [Unknown]
  - Abdominal tenderness [Unknown]
  - Musculoskeletal chest pain [Unknown]
